FAERS Safety Report 20308231 (Version 1)
Quarter: 2022Q1

REPORT INFORMATION
  Report Type: Spontaneous
  Country: CA (occurrence: CA)
  Receive Date: 20220107
  Receipt Date: 20220107
  Transmission Date: 20220423
  Serious: Yes (Hospitalization)
  Sender: FDA-Public Use
  Company Number: None

PATIENT
  Age: 52 Year
  Sex: Male
  Weight: 80 kg

DRUGS (3)
  1. FLUOROURACIL [Suspect]
     Active Substance: FLUOROURACIL
     Indication: Colon cancer
     Dosage: SOLUTION INTRAVENOUS, ONCE, INJECTION SINGLE USE VIAL
     Route: 051
  2. OXALIPLATIN [Suspect]
     Active Substance: OXALIPLATIN
     Indication: Colon cancer
     Dosage: SOLUTION INTRAVENOUS, ONCE, INJECTION SINGLE USE VIAL
     Route: 051
  3. LEUCOVORIN CALCIUM [Suspect]
     Active Substance: LEUCOVORIN CALCIUM
     Indication: Colon cancer
     Dosage: SOLUTION INTRAVENOUS, ONCE, INJECTION USP  500 MG/ 50ML, SINGLE USE VIALS
     Route: 051

REACTIONS (3)
  - Abdominal pain [Unknown]
  - Blood bilirubin increased [Unknown]
  - Hepatic enzyme increased [Unknown]
